FAERS Safety Report 8599499-9 (Version None)
Quarter: 2012Q3

REPORT INFORMATION
  Report Type: 
  Country: None (occurrence: None)
  Receive Date: 20120816
  Receipt Date: 20120528
  Transmission Date: 20120928
  Serious: No
  Sender: FDA-Public Use
  Company Number: US-ALLERGAN-1207531US

PATIENT
  Sex: Female

DRUGS (2)
  1. LASTACAFT [Suspect]
     Indication: CONJUNCTIVITIS ALLERGIC
     Dosage: UNK
     Route: 047
     Dates: start: 20110101
  2. RESTASIS [Concomitant]
     Indication: DRY EYE
     Dosage: UNK
     Route: 047
     Dates: start: 20110101

REACTIONS (2)
  - DRUG INEFFECTIVE [None]
  - CONJUNCTIVITIS ALLERGIC [None]
